FAERS Safety Report 7964786-1 (Version None)
Quarter: 2011Q4

REPORT INFORMATION
  Report Type: 
  Country: None (occurrence: None)
  Receive Date: 20111205
  Receipt Date: 20111118
  Transmission Date: 20120403
  Serious: Yes (Hospitalization, Other)
  Sender: FDA-Public Use
  Company Number: NSR_00315_2011

PATIENT
  Age: 65 Year
  Sex: Male

DRUGS (1)
  1. FLUOXETINE HYDROCHLORIDE [Suspect]
     Indication: DYSPHORIA
     Dosage: (20 MG QD)

REACTIONS (3)
  - DUODENAL ULCER HAEMORRHAGE [None]
  - ANAEMIA [None]
  - DELIRIUM [None]
